FAERS Safety Report 13361563 (Version 2)
Quarter: 2017Q3

REPORT INFORMATION
  Report Type: Spontaneous
  Country: GB (occurrence: GB)
  Receive Date: 20170323
  Receipt Date: 20170727
  Transmission Date: 20171127
  Serious: Yes (Other)
  Sender: FDA-Public Use
  Company Number: GB-009507513-1703GBR009062

PATIENT
  Age: 37 Year
  Sex: Female

DRUGS (1)
  1. NEXPLANON [Suspect]
     Active Substance: ETONOGESTREL
     Indication: CONTRACEPTION
     Dosage: 1 IMPLANT, EVERY 3 YEARS
     Route: 059
     Dates: start: 20170313

REACTIONS (8)
  - Musculoskeletal pain [Unknown]
  - Headache [Unknown]
  - Complication associated with device [Not Recovered/Not Resolved]
  - Abdominal pain [Unknown]
  - Migration of implanted drug [Not Recovered/Not Resolved]
  - Mass [Unknown]
  - Implant site pain [Unknown]
  - Musculoskeletal discomfort [Unknown]

NARRATIVE: CASE EVENT DATE: 201703
